FAERS Safety Report 6107860-7 (Version None)
Quarter: 2009Q1

REPORT INFORMATION
  Report Type: 
  Country: None (occurrence: None)
  Receive Date: 20090305
  Receipt Date: 20090305
  Transmission Date: 20090719
  Serious: Yes (Other)
  Sender: FDA-Public Use
  Company Number: None

PATIENT
  Age: 40 Year
  Sex: Female
  Weight: 90.7194 kg

DRUGS (1)
  1. CYMBALTA [Suspect]
     Indication: DEPRESSION
     Dosage: 60MG  1X DAY PO
     Route: 048
     Dates: start: 20050301, end: 20090216

REACTIONS (6)
  - BLOOD CHOLESTEROL INCREASED [None]
  - HYPERTENSION [None]
  - INSULIN RESISTANCE [None]
  - PNEUMONIA [None]
  - WEIGHT INCREASED [None]
  - WITHDRAWAL SYNDROME [None]
